FAERS Safety Report 4791493-9 (Version None)
Quarter: 2005Q4

REPORT INFORMATION
  Report Type: 
  Country: None (occurrence: None)
  Receive Date: 20051007
  Receipt Date: 20041029
  Transmission Date: 20060501
  Serious: No
  Sender: FDA-Public Use
  Company Number: US-BRISTOL-MYERS SQUIBB COMPANY-12749651

PATIENT
  Age: 67 Year
  Sex: Male
  Weight: 136 kg

DRUGS (5)
  1. AVAPRO [Suspect]
     Indication: HYPERTENSION
     Route: 048
     Dates: start: 20040101
  2. DIGOXIN [Concomitant]
     Dosage: TAKEN DAILY FOR YEARS
  3. LASIX [Concomitant]
     Dosage: TAKEN DAILY FOR YEARS
  4. POTASSIUM [Concomitant]
     Dosage: TAKEN DAILY FOR YEARS
  5. COUMADIN [Concomitant]

REACTIONS (2)
  - BENIGN PROSTATIC HYPERPLASIA [None]
  - URINARY RETENTION [None]
